FAERS Safety Report 15158960 (Version 6)
Quarter: 2020Q4

REPORT INFORMATION
  Report Type: Spontaneous
  Country: US (occurrence: US)
  Receive Date: 20180718
  Receipt Date: 20201126
  Transmission Date: 20210113
  Serious: Yes (Hospitalization, Other)
  Sender: FDA-Public Use
  Company Number: US-PFIZER INC-2018285792

PATIENT
  Age: 59 Year
  Sex: Male
  Weight: 81.65 kg

DRUGS (3)
  1. LYRICA [Suspect]
     Active Substance: PREGABALIN
     Indication: PSORIATIC ARTHROPATHY
  2. LYRICA [Suspect]
     Active Substance: PREGABALIN
     Indication: DIABETIC NEPHROPATHY
     Dosage: 150 MG, 3X/DAY (SO EVERY 8 HOURS)
  3. LYRICA [Suspect]
     Active Substance: PREGABALIN
     Indication: NEURALGIA

REACTIONS (5)
  - Spinal disorder [Unknown]
  - Thrombosis [Unknown]
  - Cerebrospinal fluid leakage [Unknown]
  - Pneumonia [Recovering/Resolving]
  - Pulmonary embolism [Recovering/Resolving]
